FAERS Safety Report 7544998-1 (Version None)
Quarter: 2011Q2

REPORT INFORMATION
  Report Type: 
  Country: None (occurrence: None)
  Receive Date: 20110614
  Receipt Date: 20101228
  Transmission Date: 20111010
  Serious: Yes (Hospitalization, Other)
  Sender: FDA-Public Use
  Company Number: US-BAYER-2011-008365

PATIENT
  Age: 42 Year
  Sex: Female
  Weight: 93 kg

DRUGS (16)
  1. ALLERGY MEDICATION [Concomitant]
  2. ZOFRAN [Concomitant]
  3. ENABLEX [Concomitant]
     Dosage: UNK UNK, QD
  4. IBUPROFEN [Concomitant]
  5. YASMIN [Suspect]
     Indication: CONTRACEPTION
     Dosage: UNK
     Dates: start: 20000101, end: 20070101
  6. PERCOCET [Concomitant]
  7. HUMALOG [Concomitant]
     Indication: DIABETES MELLITUS
     Dosage: UNK UNK, QD
     Dates: start: 20000101
  8. VASOTEC [Concomitant]
  9. PROPOFOL [Concomitant]
  10. ULTRACET [Concomitant]
  11. VESICARE [Concomitant]
     Indication: INCONTINENCE
     Dosage: 10 MG, QD
     Dates: start: 20060101, end: 20090101
  12. YAZ [Suspect]
     Indication: CONTRACEPTION
     Dosage: UNK
     Dates: start: 20000101, end: 20070101
  13. EXCEDRIN (MIGRAINE) [Concomitant]
  14. TESSALON [Concomitant]
  15. VICODIN [Concomitant]
  16. HYDROCODONE BITARTRATE [Concomitant]

REACTIONS (2)
  - DEEP VEIN THROMBOSIS [None]
  - PULMONARY EMBOLISM [None]
